FAERS Safety Report 18563422 (Version 1)
Quarter: 2020Q4

REPORT INFORMATION
  Report Type: Spontaneous
  Country: IT (occurrence: IT)
  Receive Date: 20201201
  Receipt Date: 20201201
  Transmission Date: 20210114
  Serious: Yes (Hospitalization)
  Sender: FDA-Public Use
  Company Number: IT-TEVA-2020-IT-1853315

PATIENT
  Age: 17 Year
  Sex: Male
  Weight: 92 kg

DRUGS (9)
  1. ENDOXAN BAXTER [Suspect]
     Active Substance: CYCLOPHOSPHAMIDE
     Indication: EWING^S SARCOMA
     Dosage: 7600MILLIGRAM
     Route: 042
     Dates: start: 20200227, end: 20200301
  2. BACTRIM [Concomitant]
     Active Substance: SULFAMETHOXAZOLE\TRIMETHOPRIM
     Dosage: 2DOSAGEFORM
     Route: 048
     Dates: start: 20200227, end: 20200301
  3. ZOFRAN [Concomitant]
     Active Substance: ONDANSETRON HYDROCHLORIDE
     Dosage: 24MILLIGRAM
     Route: 048
     Dates: start: 20200227, end: 20200301
  4. TRIMETON [Concomitant]
     Active Substance: CHLORPHENIRAMINE MALEATE
     Dosage: 20MILLIGRAM
     Route: 042
     Dates: start: 20200227, end: 20200301
  5. ANTRA [Concomitant]
     Active Substance: OMEPRAZOLE
     Dosage: 40MILLIGRAM
     Route: 048
     Dates: start: 20200227, end: 20200301
  6. EMEND 125 MG HARD CAPSULES|EMEND 80 MG HARD CAPSULES [Concomitant]
     Dosage: 1DOSAGEFORM
     Route: 048
     Dates: start: 20200227, end: 20200229
  7. DILATREND [Concomitant]
     Active Substance: CARVEDILOL
     Dosage: 6.25MILLIGRAM
     Route: 048
     Dates: start: 20200227, end: 20200301
  8. DECADRON [Concomitant]
     Active Substance: DEXAMETHASONE
     Dosage: 10MILLIGRAM
     Route: 042
     Dates: start: 20200227, end: 20200227
  9. ETOPOSIDE. [Suspect]
     Active Substance: ETOPOSIDE
     Indication: EWING^S SARCOMA
     Dosage: 380MILLIGRAM
     Route: 042
     Dates: start: 20200227, end: 20200301

REACTIONS (2)
  - Pyrexia [Recovering/Resolving]
  - Aplasia [Recovering/Resolving]

NARRATIVE: CASE EVENT DATE: 20200310
